FAERS Safety Report 6064758-0 (Version None)
Quarter: 2009Q1

REPORT INFORMATION
  Report Type: 
  Country: None (occurrence: None)
  Receive Date: 20090204
  Receipt Date: 20081215
  Transmission Date: 20090719
  Serious: No
  Sender: FDA-Public Use
  Company Number: A0754093A

PATIENT
  Age: 34 Year
  Sex: Female

DRUGS (1)
  1. ARIXTRA [Suspect]
     Indication: ANTIPHOSPHOLIPID SYNDROME
     Dosage: 5MG PER DAY
     Route: 058
     Dates: start: 20080301

REACTIONS (3)
  - INJECTION SITE HAEMATOMA [None]
  - INJECTION SITE IRRITATION [None]
  - PRODUCT QUALITY ISSUE [None]
